FAERS Safety Report 6216997-3 (Version None)
Quarter: 2009Q2

REPORT INFORMATION
  Report Type: 
  Country: None (occurrence: None)
  Receive Date: 20090604
  Receipt Date: 20090527
  Transmission Date: 20091009
  Serious: Yes (Hospitalization)
  Sender: FDA-Public Use
  Company Number: 2009JP003188

PATIENT
  Age: 65 Year
  Sex: Female
  Weight: 38.9 kg

DRUGS (6)
  1. TACROLIMUS [Suspect]
     Indication: INTERSTITIAL LUNG DISEASE
     Dosage: ORAL
     Route: 048
     Dates: start: 20071218, end: 20081214
  2. PREDNISOLONE [Suspect]
     Indication: INTERSTITIAL LUNG DISEASE
     Dosage: 40 MG, UNKNOWN/D, ORAL; 7.5 MG, UNKNOWN/D, ORAL; 20 MG, UNKNOWN/D, 30 MG, UNKNOWN/D, ORAL; SEE IMAG
     Route: 048
     Dates: end: 20080728
  3. CALCIUM LACTATE (CALCIUM LACTATE) POWDER [Concomitant]
  4. ONEALFA (ALFACALCIDOL) TABLET [Concomitant]
  5. BONALON (ALENDRONATE SODIUM) TABLET [Concomitant]
  6. MAGNESIUM OXIDE (MAGNESIUM OXIDE) TABLET [Concomitant]

REACTIONS (8)
  - CATARACT [None]
  - COMPUTERISED TOMOGRAM ABNORMAL [None]
  - DERMATOMYOSITIS [None]
  - DISEASE COMPLICATION [None]
  - DISEASE RECURRENCE [None]
  - HYPERGLYCAEMIA [None]
  - PNEUMONIA PNEUMOCOCCAL [None]
  - RAYNAUD'S PHENOMENON [None]
